FAERS Safety Report 12858534 (Version 4)
Quarter: 2017Q1

REPORT INFORMATION
  Report Type: Spontaneous
  Country: JP (occurrence: JP)
  Receive Date: 20161018
  Receipt Date: 20170201
  Transmission Date: 20170428
  Serious: Yes (Hospitalization, Disabling)
  Sender: FDA-Public Use
  Company Number: JP-ELI_LILLY_AND_COMPANY-JP201610005059

PATIENT
  Age: 65 Year
  Sex: Male
  Weight: 74 kg

DRUGS (6)
  1. ERBITUX [Suspect]
     Active Substance: CETUXIMAB
     Dosage: 250 MG/M2, WEEKLY (1/W)
     Route: 042
     Dates: start: 20160531, end: 20160628
  2. PONSTEL [Concomitant]
     Active Substance: MEFENAMIC ACID
     Indication: ANALGESIC THERAPY
     Dosage: 10 ML, TID
     Route: 048
     Dates: start: 20160611, end: 20160707
  3. ERBITUX [Suspect]
     Active Substance: CETUXIMAB
     Dosage: 400 MG/M2, WEEKLY (1/W)
     Route: 042
     Dates: start: 20160531
  4. RACOL [Concomitant]
     Active Substance: AMINO ACIDS\DEXTROSE\ELECTROLYTES NOS
     Indication: ANALGESIC THERAPY
     Route: 050
  5. ERBITUX [Suspect]
     Active Substance: CETUXIMAB
     Indication: LARYNGEAL CANCER
     Dosage: 700 MG/M2, WEEKLY (1/W)
     Route: 042
     Dates: start: 20160524, end: 20160524
  6. PONSTEL [Concomitant]
     Active Substance: MEFENAMIC ACID
     Dosage: 10 ML, TID
     Route: 048
     Dates: start: 20160804, end: 20160929

REACTIONS (2)
  - Dysphagia [Recovered/Resolved]
  - Stomatitis [Recovering/Resolving]

NARRATIVE: CASE EVENT DATE: 20160618
